FAERS Safety Report 10038624 (Version 1)
Quarter: 2014Q1

REPORT INFORMATION
  Report Type: Spontaneous
  Country: US (occurrence: None)
  Receive Date: 20140306
  Receipt Date: 20140306
  Transmission Date: 20141002
  Serious: Yes (Other)
  Sender: FDA-Public Use
  Company Number: 163-21880-13011891

PATIENT
  Age: 75 Year
  Sex: Male

DRUGS (9)
  1. REVLIMID (LENALIDOMIDE) (CAPSULES) [Suspect]
     Indication: PLASMA CELL MYELOMA
     Dosage: 21 IN 21 D
     Route: 048
     Dates: start: 20121109
  2. ASPIRIN (ACETYLSALICYLIC ACID) [Concomitant]
  3. COZAAR (LOSARTAN POTASSIUM) [Concomitant]
  4. IBUPROFEN [Concomitant]
  5. LASIX (FUROSEMIDE) [Concomitant]
  6. PLAVIX (CLOPIDOGREL SULFATE) [Concomitant]
  7. POTASSIUM [Concomitant]
  8. TYLENOL (PARACETAMOL) [Concomitant]
  9. ZANTAC (RANITIDINE HYDROCHLORIDE) [Concomitant]

REACTIONS (1)
  - Incorrect dose administered [None]
